FAERS Safety Report 9017434 (Version 2)
Quarter: 2013Q1

REPORT INFORMATION
  Report Type: Spontaneous
  Country: DE (occurrence: DE)
  Receive Date: 20130117
  Receipt Date: 20130226
  Transmission Date: 20140127
  Serious: Yes (Hospitalization)
  Sender: FDA-Public Use
  Company Number: DE-ASTRAZENECA-2013SE01415

PATIENT
  Sex: Female

DRUGS (1)
  1. SYMBICORT TURBOHALER [Suspect]
     Indication: ASTHMA
     Dosage: 320/9, UNKNOWN FREQUENCY
     Route: 055

REACTIONS (2)
  - Shock [Recovered/Resolved]
  - Circumstance or information capable of leading to medication error [Unknown]
